FAERS Safety Report 23286463 (Version 1)
Quarter: 2023Q4

REPORT INFORMATION
  Report Type: Spontaneous
  Country: DE (occurrence: DE)
  Receive Date: 20231212
  Receipt Date: 20231212
  Transmission Date: 20240109
  Serious: Yes (Other)
  Sender: FDA-Public Use
  Company Number: DE-EMBRYOTOX-202300447

PATIENT
  Age: 2 Week
  Sex: Female
  Weight: 3.17 kg

DRUGS (4)
  1. METOPROLOL [Suspect]
     Active Substance: METOPROLOL
     Indication: Gestational hypertension
     Dosage: 50 [MG/D (UP TO 25)]
     Route: 063
  2. LEVOTHYROXINE SODIUM [Concomitant]
     Active Substance: LEVOTHYROXINE SODIUM
     Indication: Hypothyroidism
     Dosage: UNK
     Route: 063
  3. NIFEDIPINE [Concomitant]
     Active Substance: NIFEDIPINE
     Indication: Gestational hypertension
     Dosage: 20 MILLIGRAM, QD (20 [MG/D])
     Route: 063
  4. METHYLDOPA [Concomitant]
     Active Substance: METHYLDOPA
     Indication: Gestational hypertension
     Dosage: 500 MILLIGRAM, Q6H (2000 [MG/D (4X500)])
     Route: 063

REACTIONS (3)
  - Poor feeding infant [Recovered/Resolved]
  - Somnolence [Recovered/Resolved]
  - Exposure via breast milk [Unknown]
